FAERS Safety Report 9653275 (Version 2)
Quarter: 2014Q1

REPORT INFORMATION
  Report Type: Spontaneous
  Country: US (occurrence: None)
  Receive Date: 20131028
  Receipt Date: 20140328
  Transmission Date: 20141002
  Serious: Yes (Life-Threatening, Other)
  Sender: FDA-Public Use
  Company Number: 2013-US-002147

PATIENT
  Age: 42 Year
  Sex: Female

DRUGS (5)
  1. XYREM [Suspect]
     Indication: NARCOLEPSY
     Route: 048
     Dates: start: 200807, end: 200808
  2. DEXEDRINE [Suspect]
     Indication: SOMNOLENCE
     Route: 048
  3. DEXEDRINE [Concomitant]
  4. LISINOPRIL (LISINPRIL DI HYDRATE) [Concomitant]
  5. ABILIFY (ARIPIPAZOLE) [Concomitant]

REACTIONS (5)
  - Cardiac arrest [None]
  - Resuscitation [None]
  - Gastric banding [None]
  - Blood pressure increased [None]
  - Hypotension [None]
